FAERS Safety Report 9700668 (Version 1)
Quarter: 2013Q4

REPORT INFORMATION
  Report Type: Report from Study
  Country: MX (occurrence: MX)
  Receive Date: 20131121
  Receipt Date: 20131121
  Transmission Date: 20140711
  Serious: Yes (Other)
  Sender: FDA-Public Use
  Company Number: PHHY2013MX133030

PATIENT
  Age: 67 Year
  Sex: Female

DRUGS (3)
  1. EXFORGE [Suspect]
     Indication: HYPERTENSION
     Dosage: 1 DF (160 MG VALS, 5 MG AMLO), QD
     Route: 048
     Dates: start: 201201, end: 201308
  2. SINCRONIUM [Concomitant]
     Dosage: 100 MG, QD
     Dates: start: 201308
  3. RIVOTRIL [Concomitant]
     Dosage: 3 DF, QD
     Dates: start: 201308

REACTIONS (6)
  - Carotid artery disease [Recovering/Resolving]
  - Joint swelling [Recovered/Resolved]
  - Vertigo [Recovering/Resolving]
  - Dizziness [Recovering/Resolving]
  - Tinnitus [Not Recovered/Not Resolved]
  - Insomnia [Recovering/Resolving]
